FAERS Safety Report 8151933-4 (Version None)
Quarter: 2012Q1

REPORT INFORMATION
  Report Type: 
  Country: None (occurrence: None)
  Receive Date: 20120214
  Receipt Date: 20120131
  Transmission Date: 20120608
  Serious: Yes (Hospitalization)
  Sender: FDA-Public Use
  Company Number: FK201200328

PATIENT
  Age: 45 Year
  Sex: Male

DRUGS (1)
  1. FLUOROURACIL [Suspect]
     Indication: RECTAL CANCER

REACTIONS (10)
  - NEUTROPENIC SEPSIS [None]
  - ABDOMINAL TENDERNESS [None]
  - PYREXIA [None]
  - NEUTROPENIA [None]
  - PSEUDOMEMBRANOUS COLITIS [None]
  - CHILLS [None]
  - TACHYCARDIA [None]
  - FLATULENCE [None]
  - TOXICITY TO VARIOUS AGENTS [None]
  - ABDOMINAL RIGIDITY [None]
